FAERS Safety Report 5277734-2 (Version None)
Quarter: 2007Q1

REPORT INFORMATION
  Report Type: 
  Country: None (occurrence: None)
  Receive Date: 20070321
  Receipt Date: 20070309
  Transmission Date: 20070707
  Serious: No
  Sender: FDA-Public Use
  Company Number: 2007-155447-NL

PATIENT
  Age: 23 Year
  Sex: Female

DRUGS (9)
  1. MIRTAZAPINE [Suspect]
     Indication: ANXIETY
     Dosage: 15 MG/30 MG ORAL
     Route: 048
     Dates: start: 20061023, end: 20070108
  2. MIRTAZAPINE [Suspect]
     Indication: DEPRESSION
     Dosage: 15 MG/30 MG ORAL
     Route: 048
     Dates: start: 20061023, end: 20070108
  3. MIRTAZAPINE [Suspect]
     Indication: ANXIETY
     Dosage: 15 MG/30 MG ORAL
     Route: 048
  4. MIRTAZAPINE [Suspect]
     Indication: DEPRESSION
     Dosage: 15 MG/30 MG ORAL
     Route: 048
  5. DIAZEPAM [Concomitant]
  6. ERYTHROMYCIN [Concomitant]
  7. FLOXACILLIN SODIUM [Concomitant]
  8. KOLANTICON [Concomitant]
  9. PROMAZINE HYDROCHLORIDE [Concomitant]

REACTIONS (4)
  - HALLUCINATION [None]
  - NIGHTMARE [None]
  - SLEEP DISORDER [None]
  - SLEEP PARALYSIS [None]
